FAERS Safety Report 18119601 (Version 2)
Quarter: 2020Q3

REPORT INFORMATION
  Report Type: Spontaneous
  Country: US (occurrence: US)
  Receive Date: 20200806
  Receipt Date: 20200821
  Transmission Date: 20201103
  Serious: No
  Sender: FDA-Public Use
  Company Number: US-009507513-2008USA000306

PATIENT
  Age: 44 Year
  Sex: Female

DRUGS (5)
  1. GLIMEPIRIDE. [Concomitant]
     Active Substance: GLIMEPIRIDE
  2. JARDIANCE [Concomitant]
     Active Substance: EMPAGLIFLOZIN
  3. TRULICITY [Suspect]
     Active Substance: DULAGLUTIDE
     Dosage: UNK
  4. METFORMIN [Concomitant]
     Active Substance: METFORMIN HYDROCHLORIDE
  5. JANUVIA [Suspect]
     Active Substance: SITAGLIPTIN PHOSPHATE
     Indication: DIABETES MELLITUS
     Dosage: ONE TABLET ONCE DAILY
     Route: 048
     Dates: start: 2017

REACTIONS (3)
  - Blood glucose increased [Not Recovered/Not Resolved]
  - Product dose omission issue [Unknown]
  - Hypersensitivity [Not Recovered/Not Resolved]

NARRATIVE: CASE EVENT DATE: 20200520
